FAERS Safety Report 22029759 (Version 1)
Quarter: 2023Q1

REPORT INFORMATION
  Report Type: Spontaneous
  Country: US (occurrence: US)
  Receive Date: 20230223
  Receipt Date: 20230223
  Transmission Date: 20230418
  Serious: No
  Sender: FDA-Public Use
  Company Number: US-PFIZER INC-202300075872

PATIENT
  Age: 74 Year
  Sex: Male
  Weight: 102.06 kg

DRUGS (2)
  1. PAXLOVID [Suspect]
     Active Substance: NIRMATRELVIR\RITONAVIR
     Indication: COVID-19 treatment
     Dosage: TOOK TWO WHITE IN THE MORNING AND TWO PINKS IN THE EVENING
     Route: 048
     Dates: start: 20230218, end: 20230219
  2. PAXLOVID [Suspect]
     Active Substance: NIRMATRELVIR\RITONAVIR
     Dosage: TOOK ONE WHITE AND ONE PINK
     Route: 048
     Dates: start: 20230220

REACTIONS (4)
  - Product use complaint [Unknown]
  - Product label confusion [Unknown]
  - Product communication issue [Unknown]
  - Incorrect dose administered [Unknown]

NARRATIVE: CASE EVENT DATE: 20230218
